FAERS Safety Report 11773889 (Version 3)
Quarter: 2015Q4

REPORT INFORMATION
  Report Type: Spontaneous
  Country: PT (occurrence: PT)
  Receive Date: 20151124
  Receipt Date: 20151230
  Transmission Date: 20160304
  Serious: Yes (Other)
  Sender: FDA-Public Use
  Company Number: PT-FRESENIUS KABI-FK201505976

PATIENT
  Age: 70 Year
  Sex: Female
  Weight: 50 kg

DRUGS (4)
  1. CARBOPLATIN INJECTION 10MG/ML [Suspect]
     Active Substance: CARBOPLATIN
     Indication: UTERINE NEOPLASM
     Route: 042
     Dates: start: 20150903, end: 20150924
  2. ORADEXON [Concomitant]
     Active Substance: DEXAMETHASONE
     Indication: PROPHYLAXIS
     Route: 042
     Dates: start: 20150903
  3. ONDANSETRON [Concomitant]
     Active Substance: ONDANSETRON
     Indication: PROPHYLAXIS
     Route: 042
     Dates: start: 20150903
  4. PACLITAXEL KABI [Concomitant]
     Active Substance: PACLITAXEL
     Indication: CERVIX NEOPLASM
     Route: 042
     Dates: start: 20150903, end: 20150924

REACTIONS (4)
  - Erythema [Recovered/Resolved]
  - Abdominal distension [Recovered/Resolved]
  - Hot flush [Recovered/Resolved]
  - Pruritus [Recovered/Resolved]

NARRATIVE: CASE EVENT DATE: 20150924
